FAERS Safety Report 6904158-1 (Version None)
Quarter: 2010Q3

REPORT INFORMATION
  Report Type: 
  Country: None (occurrence: None)
  Receive Date: 20100804
  Receipt Date: 20090323
  Transmission Date: 20110219
  Serious: No
  Sender: FDA-Public Use
  Company Number: US-PFIZER INC-2009168349

PATIENT
  Sex: Female

DRUGS (6)
  1. LYRICA [Suspect]
     Indication: HERPES ZOSTER
     Dosage: 75 MG, 2X/DAY
     Route: 048
     Dates: start: 20081229, end: 20090101
  2. LYRICA [Suspect]
     Indication: NEUROPATHY PERIPHERAL
  3. PREDNISONE [Concomitant]
  4. VALTREX [Concomitant]
  5. HYDRAZINE [Concomitant]
  6. CODEINE [Concomitant]
     Indication: POST HERPETIC NEURALGIA

REACTIONS (2)
  - DIZZINESS [None]
  - OEDEMA PERIPHERAL [None]
